FAERS Safety Report 7509392-8 (Version None)
Quarter: 2011Q2

REPORT INFORMATION
  Report Type: 
  Country: None (occurrence: None)
  Receive Date: 20110527
  Receipt Date: 20110521
  Transmission Date: 20111010
  Serious: Yes (Other)
  Sender: FDA-Public Use
  Company Number: US-PFIZER INC-2011110667

PATIENT
  Sex: Female
  Weight: 47.619 kg

DRUGS (4)
  1. NEURONTIN [Suspect]
     Indication: NERVOUS SYSTEM DISORDER
     Dosage: 300 MG, 3X/DAY
     Route: 048
     Dates: start: 20110311, end: 20110418
  2. NEURONTIN [Suspect]
     Indication: SLEEP DISORDER
  3. ATENOLOL [Concomitant]
     Indication: BLOOD PRESSURE ABNORMAL
     Dosage: 80 MG DAILY
     Route: 048
  4. ZOLOFT [Concomitant]
     Indication: DEPRESSION
     Dosage: 100 MG DAILY
     Route: 048

REACTIONS (4)
  - LYMPHADENOPATHY [None]
  - MOUTH ULCERATION [None]
  - SKIN ULCER [None]
  - OEDEMA MOUTH [None]
